FAERS Safety Report 11746616 (Version 1)
Quarter: 2015Q4

REPORT INFORMATION
  Report Type: Spontaneous
  Country: US (occurrence: None)
  Receive Date: 20151116
  Receipt Date: 20151116
  Transmission Date: 20160304
  Serious: Yes (Life-Threatening, Disabling)
  Sender: FDA-Public Use
  Company Number: None

PATIENT
  Age: 59 Year
  Sex: Female
  Weight: 86.18 kg

DRUGS (3)
  1. TOPIRAMATE 50MG DOCTOR [Suspect]
     Active Substance: TOPIRAMATE
     Indication: WEIGHT CONTROL
     Dosage: 1 PILL EVERY NIGHT., ONCE DAILY?
  2. LEVETHYROXIN [Concomitant]
  3. IBRUPROFEN [Concomitant]

REACTIONS (8)
  - Bone pain [None]
  - Condition aggravated [None]
  - Unevaluable event [None]
  - Renal impairment [None]
  - Uterine haemorrhage [None]
  - Rheumatic disorder [None]
  - Cognitive disorder [None]
  - Impaired work ability [None]

NARRATIVE: CASE EVENT DATE: 20151001
